FAERS Safety Report 25031779 (Version 1)
Quarter: 2025Q1

REPORT INFORMATION
  Report Type: Spontaneous
  Country: US (occurrence: None)
  Receive Date: 20250303
  Receipt Date: 20250303
  Transmission Date: 20250408
  Serious: Yes (Hospitalization)
  Sender: FDA-CTU
  Company Number: None

PATIENT
  Sex: Female
  Weight: 63.5 kg

DRUGS (3)
  1. WINREVAIR [Suspect]
     Active Substance: SOTATERCEPT-CSRK
  2. TYVASO DPI [Suspect]
     Active Substance: TREPROSTINIL
     Dates: start: 202411
  3. TYVASO .DPI TITRAT KIT.POW [Concomitant]

REACTIONS (5)
  - Fatigue [None]
  - Peripheral swelling [None]
  - Joint swelling [None]
  - Peripheral swelling [None]
  - Fallopian tube abscess [None]
